FAERS Safety Report 4942632-8 (Version None)
Quarter: 2006Q1

REPORT INFORMATION
  Report Type: 
  Country: None (occurrence: None)
  Receive Date: 20060310
  Receipt Date: 20060228
  Transmission Date: 20060701
  Serious: Yes (Hospitalization)
  Sender: FDA-Public Use
  Company Number: 2006PV009397

PATIENT
  Age: 64 Year
  Sex: Female
  Weight: 88.4514 kg

DRUGS (8)
  1. BYETTA [Suspect]
     Indication: DIABETES MELLITUS NON-INSULIN-DEPENDENT
     Dosage: 5 MCG; BID; SC
     Route: 058
     Dates: start: 20060207
  2. HYZAAR [Concomitant]
  3. TOPROL-XL [Concomitant]
  4. VYTORIN [Concomitant]
  5. ALTACE [Concomitant]
  6. FOLGARD [Concomitant]
  7. COUMADIN [Concomitant]
  8. KLOR-CON [Concomitant]

REACTIONS (1)
  - CHEST PAIN [None]
